FAERS Safety Report 20299539 (Version 1)
Quarter: 2022Q1

REPORT INFORMATION
  Report Type: Spontaneous
  Country: US (occurrence: None)
  Receive Date: 20220105
  Receipt Date: 20220105
  Transmission Date: 20220423
  Serious: Yes (Other)
  Sender: FDA-Public Use
  Company Number: None

PATIENT
  Sex: Female

DRUGS (5)
  1. HUMIRA [Suspect]
     Active Substance: ADALIMUMAB
     Indication: Rheumatoid arthritis
     Dosage: 40 MG/0.4ML;? INJECT 1 PEN (40MG) UNDER THE SKIN (SUBCUTANEOUS  INJECTION) EVERY 14 DAYS
     Route: 058
     Dates: start: 20200916
  2. HUMIRA [Suspect]
     Active Substance: ADALIMUMAB
     Indication: Rheumatoid factor positive
     Dosage: OTHER QUANTITY : 1 PEN (40 MG);?FREQUENCY : EVERY OTHER WEEK;?
     Route: 058
  3. ASPIRIN [Concomitant]
     Active Substance: ASPIRIN
  4. CETIRIZINE HCL [Concomitant]
     Active Substance: CETIRIZINE HYDROCHLORIDE
  5. FOLIC ACID [Concomitant]
     Active Substance: FOLIC ACID

REACTIONS (5)
  - Rheumatoid arthritis [None]
  - Stress [None]
  - Abortion spontaneous [None]
  - Pain [None]
  - Exposure during pregnancy [None]
